FAERS Safety Report 7883225-2 (Version None)
Quarter: 2011Q4

REPORT INFORMATION
  Report Type: 
  Country: None (occurrence: None)
  Receive Date: 20111101
  Receipt Date: 20111101
  Transmission Date: 20120403
  Serious: Yes (Life-Threatening, Other)
  Sender: FDA-Public Use
  Company Number: None

PATIENT
  Age: 41 Year
  Sex: Female
  Weight: 72.5755 kg

DRUGS (1)
  1. NONOXYNOL-9 [Suspect]
     Indication: CONTRACEPTION
     Dosage: 1 PER HOUR INTRACERVICAL
     Route: 019
     Dates: start: 20110907, end: 20110907

REACTIONS (3)
  - PREGNANCY ON CONTRACEPTIVE [None]
  - BURNING SENSATION [None]
  - DRUG INEFFECTIVE [None]
